FAERS Safety Report 8507764-6 (Version None)
Quarter: 2012Q3

REPORT INFORMATION
  Report Type: 
  Country: None (occurrence: None)
  Receive Date: 20120709
  Receipt Date: 20120709
  Transmission Date: 20120928
  Serious: Yes (Other)
  Sender: FDA-Public Use
  Company Number: None

PATIENT
  Sex: Male
  Weight: 86.7278 kg

DRUGS (1)
  1. ESCITALOPRAM [Suspect]
     Indication: DEPRESSION
     Dosage: 10 MG ONCE DAILY P.O (ORAL)
     Route: 048
     Dates: start: 20120401

REACTIONS (2)
  - PRODUCT SUBSTITUTION ISSUE [None]
  - DRUG INEFFECTIVE [None]
